FAERS Safety Report 25179852 (Version 2)
Quarter: 2025Q2

REPORT INFORMATION
  Report Type: Spontaneous
  Country: FR (occurrence: FR)
  Receive Date: 20250409
  Receipt Date: 20250423
  Transmission Date: 20250717
  Serious: No
  Sender: PFIZER
  Company Number: FR-PFIZER INC-PV202500041659

PATIENT
  Age: 10 Year
  Sex: Male

DRUGS (1)
  1. NGENLA [Suspect]
     Active Substance: SOMATROGON-GHLA
     Dosage: 17 MG, WEEKLY
     Route: 058

REACTIONS (6)
  - Injection site pain [Recovering/Resolving]
  - Fear of injection [Recovering/Resolving]
  - Incorrect dose administered [Unknown]
  - Product administration interrupted [Unknown]
  - Device leakage [Unknown]
  - Exposure via skin contact [Unknown]
